FAERS Safety Report 7065256-8 (Version None)
Quarter: 2010Q4

REPORT INFORMATION
  Report Type: 
  Country: None (occurrence: None)
  Receive Date: 20101022
  Receipt Date: 20101022
  Transmission Date: 20110411
  Serious: No
  Sender: FDA-Public Use
  Company Number: None

PATIENT
  Age: 64 Year
  Sex: Female
  Weight: 56.8 kg

DRUGS (6)
  1. ENTEREG [Suspect]
     Indication: INTESTINAL RESECTION
     Dosage: 12 MG. TWICE DAILY ORAL
     Route: 048
     Dates: start: 20101012
  2. ENTEREG [Suspect]
     Indication: INTESTINAL RESECTION
     Dosage: 12 MG. TWICE DAILY ORAL
     Route: 048
     Dates: start: 20101013
  3. MORPHINE PUMP [Concomitant]
  4. LOSARTAN POTASSIUM/HYDROCHLOROTHIAZIDE [Concomitant]
  5. METOPROLOL TARTRATE [Concomitant]
  6. ANASTROZOLE [Concomitant]

REACTIONS (7)
  - ABDOMINAL PAIN UPPER [None]
  - ANXIETY [None]
  - CONVERSION DISORDER [None]
  - DYSPNOEA [None]
  - EMOTIONAL DISORDER [None]
  - SPEECH DISORDER [None]
  - THROAT TIGHTNESS [None]
